FAERS Safety Report 20669151 (Version 5)
Quarter: 2023Q2

REPORT INFORMATION
  Report Type: Report from Study
  Country: IN (occurrence: IN)
  Receive Date: 20220404
  Receipt Date: 20230630
  Transmission Date: 20230721
  Serious: Yes (Other)
  Sender: FDA-Public Use
  Company Number: IN-NOVARTISPH-NVSC2022IN075518

PATIENT
  Sex: Male

DRUGS (6)
  1. ELTROMBOPAG OLAMINE [Suspect]
     Active Substance: ELTROMBOPAG OLAMINE
     Indication: Aplastic anaemia
     Dosage: 100 MG, QD
     Route: 065
     Dates: start: 20190620, end: 20220303
  2. ELTROMBOPAG OLAMINE [Suspect]
     Active Substance: ELTROMBOPAG OLAMINE
     Dosage: 100 MG, QD
     Route: 065
     Dates: start: 20190626, end: 20220114
  3. ELTROMBOPAG OLAMINE [Suspect]
     Active Substance: ELTROMBOPAG OLAMINE
     Dosage: 100 MG, QD
     Route: 065
     Dates: start: 20221211
  4. ELTROMBOPAG OLAMINE [Suspect]
     Active Substance: ELTROMBOPAG OLAMINE
     Dosage: 50 MG, QD
     Route: 065
     Dates: start: 20221224
  5. ELTROMBOPAG OLAMINE [Suspect]
     Active Substance: ELTROMBOPAG OLAMINE
     Dosage: 100 MG, QD
     Route: 065
     Dates: start: 20230410
  6. ELTROMBOPAG OLAMINE [Suspect]
     Active Substance: ELTROMBOPAG OLAMINE
     Dosage: 100 MG, QD
     Route: 065
     Dates: start: 20230624

REACTIONS (11)
  - Pneumonia [Unknown]
  - Chronic kidney disease [Unknown]
  - Atrial fibrillation [Unknown]
  - Coronary artery disease [Unknown]
  - Hypertension [Unknown]
  - Haemoglobin decreased [Unknown]
  - White blood cell count decreased [Unknown]
  - Platelet count decreased [Unknown]
  - Blood bilirubin increased [Recovering/Resolving]
  - Blood creatinine increased [Unknown]
  - Blood uric acid increased [Unknown]

NARRATIVE: CASE EVENT DATE: 20220101
